APPROVED DRUG PRODUCT: OXYLONE
Active Ingredient: FLUOROMETHOLONE
Strength: 0.025%
Dosage Form/Route: CREAM;TOPICAL
Application: N011748 | Product #001
Applicant: PHARMACIA AND UPJOHN CO
Approved: Approved Prior to Jan 1, 1982 | RLD: No | RS: No | Type: DISCN